FAERS Safety Report 9654298 (Version 4)
Quarter: 2014Q1

REPORT INFORMATION
  Report Type: Report from Study
  Country: JP (occurrence: JP)
  Receive Date: 20131029
  Receipt Date: 20140318
  Transmission Date: 20141002
  Serious: Yes (Death, Hospitalization, Other)
  Sender: FDA-Public Use
  Company Number: JP-SA-THYM-1003792

PATIENT
  Age: 6 Year
  Sex: Male
  Weight: 20.6 kg

DRUGS (14)
  1. THYMOGLOBULINE [Suspect]
     Indication: BONE MARROW CONDITIONING REGIMEN
     Dosage: 63 MG, QD
     Route: 065
     Dates: start: 20111227, end: 20111227
  2. PROGRAF [Suspect]
     Indication: PROPHYLAXIS AGAINST GRAFT VERSUS HOST DISEASE
     Dosage: UNK
     Route: 065
     Dates: start: 20111214, end: 20120416
  3. ZOVIRAX [Concomitant]
     Indication: ANTIVIRAL PROPHYLAXIS
     Dosage: UNK
     Dates: start: 20111216, end: 20120711
  4. BLOPRESS [Concomitant]
     Indication: HYPERTENSION
     Dosage: UNK
     Dates: start: 20111017, end: 20120711
  5. ZYVOX [Concomitant]
     Indication: FEBRILE NEUTROPENIA
     Dosage: UNK
     Dates: start: 20111225, end: 20120110
  6. MEROPEN [Concomitant]
     Indication: FEBRILE NEUTROPENIA
     Dosage: UNK
     Dates: start: 20111115, end: 20120112
  7. FUNGUARD [Concomitant]
     Indication: ANTIFUNGAL PROPHYLAXIS
     Dosage: UNK
     Dates: start: 20111022, end: 20120223
  8. AMBISOME [Concomitant]
     Indication: ANTIFUNGAL PROPHYLAXIS
     Dosage: UNK
     Dates: start: 20111222, end: 20120112
  9. SOL-MELCORT [Concomitant]
     Indication: PROPHYLAXIS
     Dosage: UNK
     Dates: start: 20111227, end: 20111227
  10. BACCIDAL [Concomitant]
     Indication: INFECTION PROPHYLAXIS
     Dosage: UNK
     Dates: start: 20111001, end: 20120125
  11. SEPAMIT [Concomitant]
     Indication: HYPERTENSION
     Dosage: UNK
     Dates: start: 20111024, end: 20120208
  12. AMLODIN [Concomitant]
     Indication: HYPERTENSION
     Dosage: UNK
     Dates: start: 20111108, end: 20120222
  13. LONGES [Concomitant]
     Indication: HYPERTENSION
     Dosage: UNK
     Dates: start: 20111212, end: 20120321
  14. BLOOD TRANSFUSION, AUXILIARY PRODUCTS [Concomitant]
     Indication: ACUTE LYMPHOCYTIC LEUKAEMIA
     Dates: start: 20111228, end: 20120711

REACTIONS (7)
  - Acute graft versus host disease in skin [Unknown]
  - Acute graft versus host disease in intestine [Unknown]
  - Chronic graft versus host disease [Unknown]
  - Thrombotic microangiopathy [Fatal]
  - Renal impairment [Not Recovered/Not Resolved]
  - Pericardial effusion [Not Recovered/Not Resolved]
  - Organising pneumonia [Recovered/Resolved]
